FAERS Safety Report 4867506-2 (Version None)
Quarter: 2005Q4

REPORT INFORMATION
  Report Type: 
  Country: None (occurrence: None)
  Receive Date: 20051227
  Receipt Date: 20051227
  Transmission Date: 20060501
  Serious: Yes (Life-Threatening, Hospitalization, Disabling)
  Sender: FDA-Public Use
  Company Number: None

PATIENT
  Age: 46 Year
  Sex: Female
  Weight: 76.2043 kg

DRUGS (2)
  1. AMIODARONE IV (900 MG IN 500 ML D5W) [Suspect]
     Indication: ATRIAL FIBRILLATION
     Dosage: 900 MG IN 500 ML D5W @ 500ML/H X 10 MIN
     Route: 042
     Dates: start: 20051216
  2. CARDIZEM [Concomitant]

REACTIONS (11)
  - ATRIAL FIBRILLATION [None]
  - ATRIAL FLUTTER [None]
  - CEREBRAL INFARCTION [None]
  - ERYTHEMA [None]
  - FACE OEDEMA [None]
  - FEELING ABNORMAL [None]
  - HEMIPARESIS [None]
  - HYPOTENSION [None]
  - MEDICATION ERROR [None]
  - RESPIRATORY DEPRESSION [None]
  - VENTRICULAR EXTRASYSTOLES [None]
